FAERS Safety Report 23619004 (Version 1)
Quarter: 2024Q1

REPORT INFORMATION
  Report Type: Spontaneous
  Country: CN (occurrence: CN)
  Receive Date: 20240311
  Receipt Date: 20240311
  Transmission Date: 20240409
  Serious: Yes (Hospitalization, Other)
  Sender: FDA-Public Use
  Company Number: CN-Merck Healthcare KGaA-2024011352

PATIENT
  Age: 67 Year
  Sex: Male
  Weight: 52 kg

DRUGS (2)
  1. ERBITUX [Suspect]
     Active Substance: CETUXIMAB
     Indication: Rectal cancer
     Dosage: 0.7 G, UNKNOWN
     Route: 041
     Dates: start: 20240222, end: 20240222
  2. SODIUM CHLORIDE [Concomitant]
     Active Substance: SODIUM CHLORIDE
     Indication: Medication dilution
     Route: 041
     Dates: start: 20240222, end: 20240222

REACTIONS (2)
  - Chest discomfort [Recovering/Resolving]
  - Tachypnoea [Recovering/Resolving]

NARRATIVE: CASE EVENT DATE: 20240222
